FAERS Safety Report 8626552 (Version 3)
Quarter: 2012Q4

REPORT INFORMATION
  Report Type: 
  Country: US (occurrence: US)
  Receive Date: 20120620
  Receipt Date: 20121016
  Transmission Date: 20130627
  Serious: Yes (Hospitalization)
  Sender: FDA-Public Use
  Company Number: US-ACTELION-A-US2012-67073

PATIENT
  Age: 53 Year
  Sex: Male

DRUGS (3)
  1. TRACLEER [Suspect]
     Indication: PULMONARY ARTERIAL HYPERTENSION
     Dosage: UNK
     Route: 048
  2. TYVASO [Concomitant]
  3. PLAVIX [Concomitant]

REACTIONS (5)
  - Myocardial infarction [Unknown]
  - Stent placement [Unknown]
  - CSF white blood cell count decreased [Unknown]
  - Gastric ulcer [Unknown]
  - Hiatus hernia [Unknown]
